FAERS Safety Report 5269613-1 (Version None)
Quarter: 2007Q1

REPORT INFORMATION
  Report Type: 
  Country: None (occurrence: None)
  Receive Date: 20070314
  Receipt Date: 20070212
  Transmission Date: 20070707
  Serious: Yes (Hospitalization)
  Sender: FDA-Public Use
  Company Number: OSCN-NO-0703S-0117

PATIENT
  Sex: Male

DRUGS (22)
  1. OMNISCAN [Suspect]
     Indication: ARTERIAL DISORDER
     Dosage: SEE IMAGE
     Route: 042
     Dates: start: 20030301, end: 20030301
  2. OMNISCAN [Suspect]
     Indication: ARTERIAL STENT INSERTION
     Dosage: SEE IMAGE
     Route: 042
     Dates: start: 20030301, end: 20030301
  3. OMNISCAN [Suspect]
     Indication: ARTERIAL DISORDER
     Dosage: SEE IMAGE
     Route: 042
     Dates: start: 20030301, end: 20030301
  4. OMNISCAN [Suspect]
     Indication: ARTERIAL STENT INSERTION
     Dosage: SEE IMAGE
     Route: 042
     Dates: start: 20030301, end: 20030301
  5. OMNISCAN [Suspect]
     Indication: ARTERIAL DISORDER
     Dosage: SEE IMAGE
     Route: 042
     Dates: start: 20050401, end: 20050401
  6. OMNISCAN [Suspect]
     Indication: ARTERIAL STENT INSERTION
     Dosage: SEE IMAGE
     Route: 042
     Dates: start: 20050401, end: 20050401
  7. OMNISCAN [Suspect]
     Indication: ARTERIAL DISORDER
     Dosage: SEE IMAGE
     Route: 042
     Dates: start: 20051101, end: 20051101
  8. OMNISCAN [Suspect]
     Indication: ARTERIAL STENT INSERTION
     Dosage: SEE IMAGE
     Route: 042
     Dates: start: 20051101, end: 20051101
  9. OMNISCAN [Suspect]
     Indication: ARTERIAL DISORDER
     Dosage: SEE IMAGE
     Route: 042
     Dates: start: 20070117, end: 20070117
  10. OMNISCAN [Suspect]
     Indication: ARTERIAL STENT INSERTION
     Dosage: SEE IMAGE
     Route: 042
     Dates: start: 20070117, end: 20070117
  11. CANDESARTAN CILEXETIL (ATACAND) [Concomitant]
  12. CARENAL [Concomitant]
  13. DIGITOXIN (DIGIMERCK) [Concomitant]
  14. PANTOPRAZOLE (PANTOLOC) [Concomitant]
  15. ROCALT [Concomitant]
  16. METOPROLOL (SELOKEN) [Concomitant]
  17. CALCIUM POLYSTYRENE SULFONATE (SORBISTERIT) [Concomitant]
  18. SEVELAMER (RENAGEL) [Concomitant]
  19. CARVEDILOL (DILATREND) [Concomitant]
  20. NICORANDIL (DANCOR) [Concomitant]
  21. PLAVIX [Concomitant]
  22. TRAMAL HYDROCHLORIDE (TRAMAL) [Concomitant]

REACTIONS (1)
  - NEPHROGENIC FIBROSING DERMOPATHY [None]
